FAERS Safety Report 4603667-8 (Version None)
Quarter: 2005Q1

REPORT INFORMATION
  Report Type: 
  Country: None (occurrence: None)
  Receive Date: 20050308
  Receipt Date: 20050308
  Transmission Date: 20050727
  Serious: Yes (Hospitalization)
  Sender: FDA-Public Use
  Company Number: None

PATIENT
  Sex: Male
  Weight: 68.9467 kg

DRUGS (1)
  1. PRAMIPEXOLE [Suspect]

REACTIONS (2)
  - HALLUCINATION, VISUAL [None]
  - PARANOIA [None]
